FAERS Safety Report 21507107 (Version 1)
Quarter: 2022Q4

REPORT INFORMATION
  Report Type: Spontaneous
  Country: US (occurrence: None)
  Receive Date: 20221025
  Receipt Date: 20221025
  Transmission Date: 20230113
  Serious: Yes (Hospitalization)
  Sender: FDA-Public Use
  Company Number: None

PATIENT
  Age: 63 Year
  Sex: Female

DRUGS (1)
  1. BEBTELOVIMAB [Suspect]
     Active Substance: BEBTELOVIMAB
     Indication: COVID-19
     Dosage: FREQUENCY : ONCE;?
     Route: 042
     Dates: start: 20221001, end: 20221001

REACTIONS (6)
  - Abdominal pain [None]
  - Vomiting [None]
  - Cough [None]
  - Dyspnoea [None]
  - Gastrointestinal inflammation [None]
  - Cholecystectomy [None]

NARRATIVE: CASE EVENT DATE: 20221001
